FAERS Safety Report 6030553-1 (Version None)
Quarter: 2009Q1

REPORT INFORMATION
  Report Type: 
  Country: None (occurrence: None)
  Receive Date: 20090107
  Receipt Date: 20090105
  Transmission Date: 20090719
  Serious: Yes (Other)
  Sender: FDA-Public Use
  Company Number: US-BAYER-200814138BCC

PATIENT
  Age: 67 Year
  Sex: Female
  Weight: 63 kg

DRUGS (5)
  1. ASPIRIN [Suspect]
     Indication: DRUG USE FOR UNKNOWN INDICATION
     Dosage: AS USED: 81 MG  UNIT DOSE: 81 MG
     Dates: start: 20070101
  2. ASPIRIN [Suspect]
     Dosage: TOTAL DAILY DOSE: 162 MG  UNIT DOSE: 81 MG
     Dates: start: 20080201
  3. PLAVIX [Suspect]
     Indication: INTRACRANIAL ANEURYSM
     Dosage: TOTAL DAILY DOSE: 75 MG  UNIT DOSE: 75 MG
     Dates: start: 20080201
  4. ANTIHYPERTENSIVES [Concomitant]
  5. ESOMEPRAZOLE MAGNESIUM [Concomitant]

REACTIONS (7)
  - APHASIA [None]
  - BALANCE DISORDER [None]
  - CEREBROVASCULAR ACCIDENT [None]
  - HYPOAESTHESIA ORAL [None]
  - PHARYNGEAL HYPOAESTHESIA [None]
  - SENSORY LOSS [None]
  - TRANSIENT ISCHAEMIC ATTACK [None]
